FAERS Safety Report 9277084 (Version 1)
Quarter: 2013Q2

REPORT INFORMATION
  Report Type: Report from Study
  Country: US (occurrence: US)
  Receive Date: 20130507
  Receipt Date: 20130507
  Transmission Date: 20140414
  Serious: Yes (Other)
  Sender: FDA-Public Use
  Company Number: US-BAXTER-2013BAX016471

PATIENT
  Age: 63 Year
  Sex: Female

DRUGS (2)
  1. CYTOXAN (CYCLOPHOSPHAMIDE FOR INJECTION, USP) 1 GRAM VIAL (LYOPHILIZE [Suspect]
     Indication: PRODUCT USED FOR UNKNOWN INDICATION
     Route: 065
  2. ADRIAMYCIN [Suspect]
     Indication: PRODUCT USED FOR UNKNOWN INDICATION
     Route: 065

REACTIONS (6)
  - Febrile neutropenia [Unknown]
  - Hypotension [Unknown]
  - Hypovolaemia [Unknown]
  - Anaemia [Unknown]
  - Pyrexia [Unknown]
  - Thrombocytopenia [Unknown]
